FAERS Safety Report 8878546 (Version 1)
Quarter: 2012Q4

REPORT INFORMATION
  Report Type: 
  Country: US (occurrence: US)
  Receive Date: 20121025
  Receipt Date: 20121025
  Transmission Date: 20130627
  Serious: No
  Sender: FDA-Public Use
  Company Number: US-AMGEN-USASP2012021292

PATIENT
  Sex: Male
  Weight: 81.63 kg

DRUGS (1)
  1. ENBREL [Suspect]
     Indication: PSORIASIS
     Dosage: 50 mg, qwk
     Route: 058
     Dates: start: 20110831

REACTIONS (2)
  - Sinus headache [Not Recovered/Not Resolved]
  - Dysgeusia [Not Recovered/Not Resolved]
